FAERS Safety Report 7827703-0 (Version None)
Quarter: 2011Q4

REPORT INFORMATION
  Report Type: 
  Country: None (occurrence: None)
  Receive Date: 20111020
  Receipt Date: 20111011
  Transmission Date: 20120403
  Serious: Yes (Hospitalization)
  Sender: FDA-Public Use
  Company Number: BE-JNJFOC-20111008434

PATIENT
  Sex: Female
  Weight: 56.4 kg

DRUGS (2)
  1. ESTRADIOL [Concomitant]
     Dates: start: 20090101
  2. TAPENTADOL HYDROCHLORIDE [Suspect]
     Indication: BACK PAIN
     Route: 065
     Dates: start: 20110915, end: 20111009

REACTIONS (6)
  - TRAUMATIC LUNG INJURY [None]
  - ROAD TRAFFIC ACCIDENT [None]
  - INJURY [None]
  - PNEUMOTHORAX [None]
  - HAND FRACTURE [None]
  - PLEURAL EFFUSION [None]
